FAERS Safety Report 6999679-X (Version None)
Quarter: 2010Q3

REPORT INFORMATION
  Report Type: 
  Country: None (occurrence: None)
  Receive Date: 20100920
  Receipt Date: 20100906
  Transmission Date: 20110219
  Serious: No
  Sender: FDA-Public Use
  Company Number: US-B.I. PHARMACEUTICALS,INC./RIDGEFIELD-2010-BP-10163BP

PATIENT
  Age: 21 Month
  Sex: Female

DRUGS (1)
  1. ZANTAC 150 [Suspect]
     Route: 048
     Dates: start: 20100906, end: 20100906

REACTIONS (2)
  - ACCIDENTAL DRUG INTAKE BY CHILD [None]
  - VOMITING [None]
